FAERS Safety Report 8288689 (Version 2)
Quarter: 2013Q4

REPORT INFORMATION
  Report Type: Spontaneous
  Country: US (occurrence: US)
  Receive Date: 20111213
  Receipt Date: 20131106
  Transmission Date: 20140711
  Serious: No
  Sender: FDA-Public Use
  Company Number: US-AMGEN-USASP2011056399

PATIENT
  Age: 80 Year
  Sex: Female

DRUGS (2)
  1. ENBREL [Suspect]
     Indication: RHEUMATOID ARTHRITIS
     Dosage: 25 MG, 2 TIMES/WK
     Route: 065
     Dates: start: 19990101, end: 20130906
  2. METHOTREXATE                       /00113802/ [Concomitant]
     Dosage: UNK MG, QWK

REACTIONS (8)
  - Arthralgia [Not Recovered/Not Resolved]
  - Pain in extremity [Not Recovered/Not Resolved]
  - Hand deformity [Not Recovered/Not Resolved]
  - Sleep disorder due to general medical condition, insomnia type [Not Recovered/Not Resolved]
  - Foot deformity [Recovered/Resolved]
  - Protein total increased [Unknown]
  - Chest X-ray abnormal [Not Recovered/Not Resolved]
  - Injection site pain [Recovered/Resolved]
